FAERS Safety Report 9834741 (Version 2)
Quarter: 2014Q1

REPORT INFORMATION
  Report Type: Report from Study
  Country: US (occurrence: US)
  Receive Date: 20140122
  Receipt Date: 20140203
  Transmission Date: 20141002
  Serious: Yes (Other)
  Sender: FDA-Public Use
  Company Number: US-NAPPMUNDI-USA-2014-0110330

PATIENT
  Age: 69 Year
  Sex: Male

DRUGS (1)
  1. OXY CR TAB [Suspect]
     Indication: BACK PAIN
     Dosage: 80 MG, TID
     Route: 048
     Dates: start: 20131224

REACTIONS (4)
  - Prostate cancer [Recovered/Resolved]
  - Fall [Unknown]
  - Ligament sprain [Recovering/Resolving]
  - Pain [Unknown]
